FAERS Safety Report 8353562-6 (Version None)
Quarter: 2012Q2

REPORT INFORMATION
  Report Type: 
  Country: None (occurrence: None)
  Receive Date: 20120511
  Receipt Date: 20110610
  Transmission Date: 20120825
  Serious: No
  Sender: FDA-Public Use
  Company Number: US-GLAXOSMITHKLINE-A0931169A

PATIENT
  Age: 69 Year
  Sex: Female

DRUGS (8)
  1. ZOMETA [Concomitant]
  2. METFORMIN HCL [Concomitant]
  3. PROCHLORPERAZINE [Concomitant]
  4. OMEPRAZOLE [Concomitant]
  5. FLUOXETINE [Concomitant]
  6. HERCEPTIN [Concomitant]
  7. HYDROCODONE BITARTRATE [Concomitant]
  8. TYKERB [Suspect]
     Indication: BREAST CANCER
     Dosage: 1000MG PER DAY
     Route: 048
     Dates: start: 20110603

REACTIONS (1)
  - DIARRHOEA [None]
